FAERS Safety Report 11271041 (Version 2)
Quarter: 2015Q3

REPORT INFORMATION
  Report Type: Spontaneous
  Country: US (occurrence: US)
  Receive Date: 20150714
  Receipt Date: 20150821
  Transmission Date: 20151125
  Serious: Yes (Other)
  Sender: FDA-Public Use
  Company Number: US-PFIZER INC-2015232461

PATIENT
  Age: 88 Year
  Sex: Male
  Weight: 91 kg

DRUGS (8)
  1. VITAMIN B12 [Concomitant]
     Active Substance: CYANOCOBALAMIN
     Dosage: 2500 MG, UNK
  2. FISH OIL [Concomitant]
     Active Substance: FISH OIL
     Dosage: 1000 MG, UNK
  3. TAMSULOSIN HCL [Suspect]
     Active Substance: TAMSULOSIN
     Dosage: 0.4 MG, 1X/DAY
     Dates: start: 201507
  4. VITAMIN B3 [Concomitant]
     Active Substance: NIACIN
     Dosage: 1000 UNITS
  5. CENTRUM SILVER ?OVER 50? [Concomitant]
  6. METOPROLOL [Concomitant]
     Active Substance: METOPROLOL
     Indication: HYPERTENSION
     Dosage: 25 MG, 2X/DAY
     Dates: start: 2014
  7. TOVIAZ [Suspect]
     Active Substance: FESOTERODINE FUMARATE
     Indication: DYSURIA
     Dosage: 10 MG, TWICE A DAY
     Dates: start: 201507, end: 201507
  8. PRAVASTATIN [Concomitant]
     Active Substance: PRAVASTATIN\PRAVASTATIN SODIUM
     Indication: BLOOD CHOLESTEROL
     Dosage: 20 MG, 1X/DAY
     Dates: start: 2014

REACTIONS (6)
  - Incorrect dose administered [Unknown]
  - Condition aggravated [Not Recovered/Not Resolved]
  - Drug effect incomplete [Unknown]
  - Product use issue [Unknown]
  - Vision blurred [Not Recovered/Not Resolved]
  - Urinary retention [Not Recovered/Not Resolved]

NARRATIVE: CASE EVENT DATE: 2015
